FAERS Safety Report 17067195 (Version 1)
Quarter: 2019Q4

REPORT INFORMATION
  Report Type: Spontaneous
  Country: US (occurrence: US)
  Receive Date: 20191122
  Receipt Date: 20191122
  Transmission Date: 20200122
  Serious: No
  Sender: FDA-Public Use
  Company Number: US-PERRIGO-19US007862

PATIENT
  Age: 58 Year
  Sex: Male
  Weight: 79.37 kg

DRUGS (3)
  1. NICOTINE POLACRILEX [Suspect]
     Active Substance: NICOTINE
     Indication: SMOKING CESSATION THERAPY
     Dosage: 2 MG, 1 TO 2 TIMES DAILY
     Route: 048
     Dates: start: 20190624, end: 20190625
  2. NICOTINE POLACRILEX [Suspect]
     Active Substance: NICOTINE
     Dosage: 2 MG, 1 TO 2 TIMES DAILY
     Route: 002
     Dates: start: 20190626
  3. LISINOPRIL. [Concomitant]
     Active Substance: LISINOPRIL
     Indication: HYPERTENSION
     Dosage: UNK
     Route: 065

REACTIONS (2)
  - Hiccups [Not Recovered/Not Resolved]
  - Incorrect route of product administration [Not Recovered/Not Resolved]

NARRATIVE: CASE EVENT DATE: 20190624
